FAERS Safety Report 12940418 (Version 1)
Quarter: 2016Q4

REPORT INFORMATION
  Report Type: Report from Study
  Country: IT (occurrence: IT)
  Receive Date: 20161115
  Receipt Date: 20161115
  Transmission Date: 20170207
  Serious: Yes (Other)
  Sender: FDA-Public Use
  Company Number: IT-ROCHE-1852528

PATIENT

DRUGS (3)
  1. FLUOROURACIL. [Suspect]
     Active Substance: FLUOROURACIL
     Indication: ANAL CANCER
     Dosage: CONTINUOUS INFUSION DAYS 1-4 AND DAYS 29-32 (WEEKS 1 AND 5).
     Route: 065
  2. CAPECITABINE. [Suspect]
     Active Substance: CAPECITABINE
     Indication: ANAL CANCER
     Dosage: 1250 MG/M2 /DAY IN TWO DIVIDED DOSES
     Route: 048
  3. MITOMYCIN C [Suspect]
     Active Substance: MITOMYCIN
     Indication: ANAL CANCER
     Dosage: 12 MG/M2 (MAXIMUM 20 MG) ON THE FIRST DAY OF RADIOTHERAPY ONLY
     Route: 065

REACTIONS (11)
  - Vaginal haemorrhage [Unknown]
  - Drug intolerance [Unknown]
  - Dysuria [Unknown]
  - Vulvovaginal dryness [Unknown]
  - Chest pain [Unknown]
  - Sexual dysfunction [Unknown]
  - Vaginal discharge [Unknown]
  - Vulvovaginal pain [Unknown]
  - Dyspareunia [Unknown]
  - Nocturia [Unknown]
  - Erectile dysfunction [Unknown]
